FAERS Safety Report 14510350 (Version 1)
Quarter: 2018Q1

REPORT INFORMATION
  Report Type: Spontaneous
  Country: US (occurrence: US)
  Receive Date: 20180208
  Receipt Date: 20180208
  Transmission Date: 20180509
  Serious: No
  Sender: FDA-Public Use
  Company Number: None

PATIENT
  Age: 38 Year
  Sex: Female

DRUGS (1)
  1. COPAXONE [Suspect]
     Active Substance: GLATIRAMER ACETATE
     Indication: MULTIPLE SCLEROSIS
     Route: 058
     Dates: start: 20170817

REACTIONS (7)
  - Chest discomfort [None]
  - Dyspnoea [None]
  - Bone pain [None]
  - Burning sensation [None]
  - Myalgia [None]
  - Therapy cessation [None]
  - Chills [None]

NARRATIVE: CASE EVENT DATE: 20180201
